FAERS Safety Report 23323129 (Version 1)
Quarter: 2023Q4

REPORT INFORMATION
  Report Type: Spontaneous
  Country: US (occurrence: None)
  Receive Date: 20231220
  Receipt Date: 20231220
  Transmission Date: 20240109
  Serious: No
  Sender: FDA-Public Use
  Company Number: US-ROCHE-3286422

PATIENT
  Age: 45 Year
  Sex: Female

DRUGS (42)
  1. RITUXIMAB [Suspect]
     Active Substance: RITUXIMAB
     Indication: Product used for unknown indication
     Route: 058
  2. ZEPOSIA [Concomitant]
     Active Substance: OZANIMOD HYDROCHLORIDE
     Dates: start: 202203, end: 202301
  3. VUMERITY [Concomitant]
     Active Substance: DIROXIMEL FUMARATE
     Dates: start: 202203, end: 202209
  4. AMITRIPTYLINE [Concomitant]
     Active Substance: AMITRIPTYLINE
     Dates: start: 20221227
  5. AMLODIPINE [Concomitant]
     Active Substance: AMLODIPINE BESYLATE
     Dates: start: 20221116
  6. BACLOFEN [Concomitant]
     Active Substance: BACLOFEN
     Dosage: SUBSEQUENT DOSE ON 04/APR/2022
     Route: 048
     Dates: start: 20221207
  7. BACLOFEN [Concomitant]
     Active Substance: BACLOFEN
     Route: 048
     Dates: start: 20210412, end: 20210414
  8. BUSPIRONE [Concomitant]
     Active Substance: BUSPIRONE HYDROCHLORIDE
     Dates: start: 20220222
  9. BUSPIRONE [Concomitant]
     Active Substance: BUSPIRONE HYDROCHLORIDE
     Dates: start: 20210315
  10. CLOPIDOGREL [Concomitant]
     Active Substance: CLOPIDOGREL BISULFATE
     Dosage: 1 TABLET BY MOUTH EVERY OTHER DAY
     Route: 048
     Dates: start: 20220221
  11. DEXLANSOPRAZOLE [Concomitant]
     Active Substance: DEXLANSOPRAZOLE
     Dates: start: 20220223
  12. DIAZEPAM [Concomitant]
     Active Substance: DIAZEPAM
     Dosage: TAKE ONE TABLET BY MOUTH EVERY DAY AND TAKE 1 1/2 TAB EVERY NIGHT AT BED TIME
     Route: 048
     Dates: start: 20221220
  13. DIAZEPAM [Concomitant]
     Active Substance: DIAZEPAM
     Dosage: TAKE ONE TABLET BY MOUTH EVERY DAY AND TAKE 1 1/2 TAB EVERY NIGHT AT BED TIME, SUBSEQUENT DOSE ON 15
     Route: 048
     Dates: start: 20200330, end: 20200504
  14. CYANOCOBALAMIN [Concomitant]
     Active Substance: CYANOCOBALAMIN
     Dosage: 1000 MCG/ML
     Dates: start: 20221208
  15. ELIQUIS [Concomitant]
     Active Substance: APIXABAN
     Dates: start: 20220221
  16. ERGOCALCIFEROL [Concomitant]
     Active Substance: ERGOCALCIFEROL
     Dosage: 1250 MCG (50,000 UNITS)
     Dates: start: 20220816
  17. ERGOCALCIFEROL [Concomitant]
     Active Substance: ERGOCALCIFEROL
     Dosage: SUBSEQUENT DOSE ON 01/JUL/2021
     Route: 048
     Dates: start: 20200121, end: 20201130
  18. ESTRADIOL [Concomitant]
     Active Substance: ESTRADIOL
     Route: 067
     Dates: start: 20220221
  19. FINACEA [Concomitant]
     Active Substance: AZELAIC ACID
     Route: 061
     Dates: start: 20220531
  20. LEVOXYL [Concomitant]
     Active Substance: LEVOTHYROXINE SODIUM
     Dates: start: 20220601
  21. LIOTHYRONINE [Concomitant]
     Active Substance: LIOTHYRONINE
     Route: 048
     Dates: start: 20220601
  22. MAGNESIUM OXIDE [Concomitant]
     Active Substance: MAGNESIUM OXIDE
     Dosage: AT BED TIME
     Route: 048
     Dates: start: 20230119
  23. METOPROLOL SUCCINATE [Concomitant]
     Active Substance: METOPROLOL SUCCINATE
     Dates: start: 20221116
  24. OZEMPIC [Concomitant]
     Active Substance: SEMAGLUTIDE
     Route: 058
     Dates: start: 20221228
  25. PROMETHAZINE [Concomitant]
     Active Substance: PROMETHAZINE HYDROCHLORIDE
     Dates: start: 20220817
  26. PROMETHAZINE [Concomitant]
     Active Substance: PROMETHAZINE HYDROCHLORIDE
     Dosage: 6.25 MG/5 ML
     Route: 048
     Dates: start: 20221230
  27. PROMETHAZINE [Concomitant]
     Active Substance: PROMETHAZINE HYDROCHLORIDE
     Route: 054
     Dates: start: 20221204
  28. TIZANIDINE [Concomitant]
     Active Substance: TIZANIDINE
     Route: 048
     Dates: start: 20221207
  29. TIZANIDINE [Concomitant]
     Active Substance: TIZANIDINE
     Dosage: TAKE 1/2 TO 1 TABLET
     Route: 048
     Dates: start: 20210428, end: 20220411
  30. TIZANIDINE [Concomitant]
     Active Substance: TIZANIDINE
     Dosage: TAKE 1/2 TO 1 TABLET, SUBSEQUENT DOSE ON 25/MAR/2020 TO 09/NOV/2020, 19/JAN/2021 TO 28/APR/2021
     Route: 048
     Dates: start: 20180808, end: 20200325
  31. TRAMADOL [Concomitant]
     Active Substance: TRAMADOL\TRAMADOL HYDROCHLORIDE
     Dosage: SUBSEQUENT DOSE ON 17/FEB/2022
     Route: 048
     Dates: start: 20230103
  32. HYDROCHLOROTHIAZIDE\TRIAMTERENE [Concomitant]
     Active Substance: HYDROCHLOROTHIAZIDE\TRIAMTERENE
     Dosage: TRIAMTERENE - 37.5 MG, HYDRO CHLORTHIAZIDE 25 MG
     Route: 048
     Dates: start: 20220601
  33. HYDROCHLOROTHIAZIDE\TRIAMTERENE [Concomitant]
     Active Substance: HYDROCHLOROTHIAZIDE\TRIAMTERENE
     Dosage: TRIAMTERENE - 37.5 MG, HYDRO CHLORTHIAZIDE 25 MG,
     Route: 048
     Dates: start: 20220217
  34. ZEPOSIA [Concomitant]
     Active Substance: OZANIMOD HYDROCHLORIDE
     Dates: start: 20221104
  35. LEVOTHYROXINE [Concomitant]
     Active Substance: LEVOTHYROXINE
     Dates: start: 20181025
  36. ESCITALOPRAM [Concomitant]
     Active Substance: ESCITALOPRAM OXALATE
     Dosage: 2 TABLETS BY MOUTH EVERY DAY, SUBSEQUENT DOSE ON 25/OCT/2021
     Route: 048
     Dates: start: 20200325, end: 20200514
  37. KETOROLAC [Concomitant]
     Active Substance: KETOROLAC TROMETHAMINE
     Dosage: 30 MG/ML, EVERY 6 HRS AS NEEDED
     Route: 030
     Dates: start: 20200810, end: 20210215
  38. KETOROLAC [Concomitant]
     Active Substance: KETOROLAC TROMETHAMINE
     Dosage: 30 MG/ML, EVERY 6 HRS AS NEEDED, SUBSEQUENT DOSE ON 02/AUG/2021
     Route: 030
     Dates: start: 20200414, end: 20210603
  39. VITAMIN D2 [Concomitant]
     Active Substance: ERGOCALCIFEROL
     Dosage: 50,000 UNIT
     Dates: start: 20180816, end: 20191111
  40. ACETAZOLAMIDE [Concomitant]
     Active Substance: ACETAZOLAMIDE
     Route: 048
     Dates: start: 20200504
  41. TRIAMTERENE [Concomitant]
     Active Substance: TRIAMTERENE
     Route: 048
     Dates: start: 20201111
  42. PLEGRIDY [Concomitant]
     Active Substance: PEGINTERFERON BETA-1A
     Route: 058

REACTIONS (3)
  - Rash [Unknown]
  - Aphthous ulcer [Unknown]
  - Oedema [Unknown]
